FAERS Safety Report 8388778 (Version 2)
Quarter: 2012Q4

REPORT INFORMATION
  Report Type: 
  Country: US (occurrence: US)
  Receive Date: 20120203
  Receipt Date: 20120917
  Transmission Date: 20130627
  Serious: Yes (Other)
  Sender: FDA-Public Use
  Company Number: US-PFIZER INC-2012029459

PATIENT
  Age: 65 Year
  Sex: Male
  Weight: 78.01 kg

DRUGS (7)
  1. LIPITOR [Suspect]
     Indication: BLOOD CHOLESTEROL INCREASED
     Dosage: 20 mg, daily
     Route: 048
  2. LIPITOR [Suspect]
     Dosage: UNK, daily
     Route: 048
  3. CELEBREX [Suspect]
     Indication: RHEUMATOID ARTHRITIS
     Dosage: 200 mg, 2x/day
  4. METHOTREXATE [Concomitant]
     Indication: RHEUMATOID ARTHRITIS
     Dosage: 150 mg, weekly
  5. ACTOS [Concomitant]
     Indication: TYPE 2 DIABETES MELLITUS
     Dosage: 45 mg, daily
  6. ZYPREXA [Concomitant]
     Indication: PSYCHOTIC DISORDER
     Dosage: 10 mg, daily
  7. JANUVIA [Concomitant]
     Indication: DIABETES MELLITUS
     Dosage: 100 mg, daily

REACTIONS (2)
  - Lung neoplasm malignant [Recovered/Resolved]
  - Circumstance or information capable of leading to medication error [Unknown]
